FAERS Safety Report 18694679 (Version 1)
Quarter: 2021Q1

REPORT INFORMATION
  Report Type: Spontaneous
  Country: US (occurrence: US)
  Receive Date: 20210104
  Receipt Date: 20210104
  Transmission Date: 20210419
  Serious: Yes (Other)
  Sender: FDA-Public Use
  Company Number: US-MYLANLABS-2020M1106204

PATIENT
  Age: 32 Year
  Sex: Female

DRUGS (7)
  1. FENTANYL. [Suspect]
     Active Substance: FENTANYL
     Indication: EPIDURAL ANALGESIA
     Dosage: PROGRAMMED INTERMITTENT EPIDURAL BOLUS WITH PATIENT?CONTROLLED EPIDURAL ?..
     Route: 008
  2. SALINE                             /00075401/ [Suspect]
     Active Substance: SODIUM CHLORIDE
     Indication: EPIDURAL CATHETER PLACEMENT
     Dosage: INCREMENTAL BOLUSES OF 5ML
     Route: 008
  3. EPINEPHRINE. [Suspect]
     Active Substance: EPINEPHRINE
     Indication: EPIDURAL ANAESTHESIA
     Dosage: EPINEPHRINE 1:200000 USING A 17?G TUOHY NEEDLE WITH LIDOCAINE
     Route: 008
  4. LIDOCAINE. [Suspect]
     Active Substance: LIDOCAINE
     Indication: EPIDURAL ANAESTHESIA
     Dosage: 3 MILLILITER USING A 17?G TUOHY NEEDLE WITH EPINEPHRINE, TEST DOSE
     Route: 008
  5. LIDOCAINE. [Suspect]
     Active Substance: LIDOCAINE
     Indication: EPIDURAL ANAESTHESIA
     Dosage: 2 MILLILITER USING A 17?G TUOHY NEEDLE WITH EPINEPHRINE
     Route: 008
  6. PHENYLEPHRINE [Suspect]
     Active Substance: PHENYLEPHRINE HYDROCHLORIDE
     Indication: HYPOTENSION
     Dosage: 80 MICROGRAM
     Route: 042
  7. BUPIVACAINE. [Suspect]
     Active Substance: BUPIVACAINE
     Indication: EPIDURAL ANALGESIA
     Dosage: PROGRAMMED INTERMITTENT EPIDURAL BOLUS WITH PATIENT?CONTROLLED EPIDURAL ?..
     Route: 008

REACTIONS (4)
  - Dizziness [Recovering/Resolving]
  - Maternal exposure during delivery [Recovering/Resolving]
  - Nausea [Recovering/Resolving]
  - Blood pressure decreased [Recovering/Resolving]
